FAERS Safety Report 4675790-3 (Version None)
Quarter: 2005Q2

REPORT INFORMATION
  Report Type: 
  Country: None (occurrence: None)
  Receive Date: 20050517
  Receipt Date: 20050517
  Transmission Date: 20051028
  Serious: No
  Sender: FDA-Public Use
  Company Number: None

PATIENT
  Age: 20 Year
  Sex: Female
  Weight: 48.5349 kg

DRUGS (4)
  1. NAPROXEN [Suspect]
  2. DARVOCET [Suspect]
  3. TYLENOL (CAPLET) [Suspect]
  4. MOTRIN [Suspect]

REACTIONS (6)
  - BLOOD PRESSURE INCREASED [None]
  - CAUSTIC INJURY [None]
  - MIGRAINE [None]
  - NAUSEA [None]
  - URTICARIA [None]
  - VOMITING [None]
